FAERS Safety Report 13461685 (Version 1)
Quarter: 2017Q2

REPORT INFORMATION
  Report Type: Spontaneous
  Country: FR (occurrence: FR)
  Receive Date: 20170420
  Receipt Date: 20170420
  Transmission Date: 20170830
  Serious: Yes (Hospitalization, Other)
  Sender: FDA-Public Use
  Company Number: FR-GLAXOSMITHKLINE-FR2017GSK054460

PATIENT
  Age: 26 Year
  Sex: Male

DRUGS (3)
  1. ACICLOVIR [Suspect]
     Active Substance: ACYCLOVIR
     Indication: HERPES VIRUS INFECTION
     Dosage: UNK
     Dates: start: 201603
  2. IVACAFTOR [Interacting]
     Active Substance: IVACAFTOR
     Indication: CYSTIC FIBROSIS
     Dosage: UNK
     Dates: start: 20160203
  3. LUMACAFTOR [Interacting]
     Active Substance: LUMACAFTOR
     Indication: CYSTIC FIBROSIS
     Dosage: UNK
     Dates: start: 20160203

REACTIONS (6)
  - Rhabdomyolysis [Recovering/Resolving]
  - Myalgia [Unknown]
  - Drug interaction [Unknown]
  - Chromaturia [Unknown]
  - Muscle oedema [Unknown]
  - Blood creatine phosphokinase increased [Unknown]

NARRATIVE: CASE EVENT DATE: 201603
